FAERS Safety Report 10028652 (Version 2)
Quarter: 2014Q2

REPORT INFORMATION
  Report Type: Report from Study
  Country: GB (occurrence: GB)
  Receive Date: 20140321
  Receipt Date: 20140630
  Transmission Date: 20141212
  Serious: Yes (Other)
  Sender: FDA-Public Use
  Company Number: GB-CELGENEUS-167-21880-14031766

PATIENT
  Age: 66 Year
  Sex: Male

DRUGS (6)
  1. REVLIMID [Suspect]
     Indication: PLASMA CELL MYELOMA
     Route: 048
     Dates: start: 20110906, end: 20120930
  2. REVLIMID [Suspect]
     Route: 048
     Dates: end: 20121004
  3. CYCLOPHOSPHAMIDE [Suspect]
     Indication: PLASMA CELL MYELOMA
     Route: 065
     Dates: start: 20110906, end: 20120917
  4. CYCLOPHOSPHAMIDE [Suspect]
     Route: 065
     Dates: end: 20121004
  5. DEXAMETHASONE [Suspect]
     Indication: PLASMA CELL MYELOMA
     Route: 065
     Dates: start: 20110906, end: 20120924
  6. DEXAMETHASONE [Suspect]
     Route: 065
     Dates: end: 20121004

REACTIONS (1)
  - Prostate cancer [Recovered/Resolved with Sequelae]
